FAERS Safety Report 7626411-9 (Version None)
Quarter: 2011Q3

REPORT INFORMATION
  Report Type: 
  Country: None (occurrence: None)
  Receive Date: 20110714
  Receipt Date: 20110701
  Transmission Date: 20111222
  Serious: Yes (Other)
  Sender: FDA-Public Use
  Company Number: 11-401

PATIENT
  Sex: Female

DRUGS (1)
  1. ERGOCALCIFEROL [Suspect]
     Dosage: DF/ DF/

REACTIONS (5)
  - MUSCLE SPASMS [None]
  - ARTHRALGIA [None]
  - MYALGIA [None]
  - ABASIA [None]
  - INSOMNIA [None]
